FAERS Safety Report 9640314 (Version 3)
Quarter: 2013Q4

REPORT INFORMATION
  Report Type: Spontaneous
  Country: FR (occurrence: FR)
  Receive Date: 20131023
  Receipt Date: 20131120
  Transmission Date: 20140711
  Serious: Yes (Hospitalization)
  Sender: FDA-Public Use
  Company Number: FR-ROCHE-GNE287508

PATIENT
  Age: 69 Year
  Sex: Male
  Weight: 66.07 kg

DRUGS (16)
  1. XOLAIR [Suspect]
     Indication: ASTHMA
     Dosage: 375 MG, UNK
     Route: 058
     Dates: start: 20090408
  2. XOLAIR [Suspect]
     Dosage: 375 MG, UNK
     Route: 058
     Dates: start: 20090701
  3. SYMBICORT [Concomitant]
     Indication: PRODUCT USED FOR UNKNOWN INDICATION
  4. BAMBUTEROL [Concomitant]
     Indication: PRODUCT USED FOR UNKNOWN INDICATION
  5. SPIRIVA [Concomitant]
     Indication: PRODUCT USED FOR UNKNOWN INDICATION
  6. VENTOLINE [Concomitant]
     Indication: PRODUCT USED FOR UNKNOWN INDICATION
  7. INIPOMP [Concomitant]
     Indication: PRODUCT USED FOR UNKNOWN INDICATION
  8. HYDROCORTISONE [Concomitant]
     Indication: PRODUCT USED FOR UNKNOWN INDICATION
     Dosage: 10 MG, UNK
     Route: 065
  9. KARDEGIC [Concomitant]
     Indication: PRODUCT USED FOR UNKNOWN INDICATION
  10. FLUCONAZOLE [Concomitant]
     Indication: PRODUCT USED FOR UNKNOWN INDICATION
  11. PARACETAMOL [Concomitant]
     Indication: PRODUCT USED FOR UNKNOWN INDICATION
  12. DOLIPRANE [Concomitant]
  13. LACTULOSE [Concomitant]
     Route: 065
  14. BRICANYL [Concomitant]
  15. ATROVENT [Concomitant]
  16. PULMICORT [Concomitant]

REACTIONS (10)
  - Transient global amnesia [Recovered/Resolved]
  - Amnestic disorder [Recovered/Resolved]
  - Convulsion [Not Recovered/Not Resolved]
  - Respiratory failure [Recovered/Resolved]
  - Aggression [Unknown]
  - Cerebrovascular accident [Unknown]
  - Ischaemia [Unknown]
  - Blood creatine phosphokinase increased [Unknown]
  - Electrocardiogram QRS complex abnormal [Unknown]
  - Oxygen saturation decreased [Unknown]
